FAERS Safety Report 10363371 (Version 2)
Quarter: 2014Q3

REPORT INFORMATION
  Report Type: Spontaneous
  Country: US (occurrence: US)
  Receive Date: 20140805
  Receipt Date: 20140805
  Transmission Date: 20150326
  Serious: Yes (Hospitalization, Other)
  Sender: FDA-Public Use
  Company Number: US-009507513-2011SP040935

PATIENT
  Sex: Female
  Weight: 113.4 kg

DRUGS (1)
  1. NUVARING [Suspect]
     Active Substance: ETHINYL ESTRADIOL\ETONOGESTREL
     Indication: CONTRACEPTION
     Dates: start: 20070320, end: 20070916

REACTIONS (13)
  - Hypertension [Unknown]
  - Dyspnoea [Recovered/Resolved]
  - Hypercoagulation [Unknown]
  - Cardiomyopathy [Unknown]
  - Hyperventilation [Recovered/Resolved]
  - Blood pressure increased [Unknown]
  - Disturbance in attention [Unknown]
  - Chest pain [Recovered/Resolved]
  - Pulmonary embolism [Unknown]
  - Troponin increased [Unknown]
  - Asthenia [Unknown]
  - Heart rate increased [Unknown]
  - Deep vein thrombosis [Recovering/Resolving]

NARRATIVE: CASE EVENT DATE: 200709
